FAERS Safety Report 8659380 (Version 7)
Quarter: 2013Q3

REPORT INFORMATION
  Report Type: Report from Study
  Country: TR (occurrence: TR)
  Receive Date: 20120711
  Receipt Date: 20130718
  Transmission Date: 20140515
  Serious: Yes (Hospitalization)
  Sender: FDA-Public Use
  Company Number: TR-JNJFOC-20120703457

PATIENT
  Age: 36 Year
  Sex: Male
  Weight: 113 kg

DRUGS (2)
  1. USTEKINIMAB [Suspect]
     Indication: PSORIASIS
     Dosage: DOSAGE WAS TEMPORARILY STOPPED
     Route: 058
     Dates: start: 20100929, end: 20120713
  2. USTEKINIMAB [Suspect]
     Indication: PSORIASIS
     Route: 058

REACTIONS (2)
  - Pneumonia [Recovered/Resolved]
  - Psoriasis [Recovered/Resolved]
